FAERS Safety Report 8059842-6 (Version None)
Quarter: 2012Q1

REPORT INFORMATION
  Report Type: 
  Country: None (occurrence: None)
  Receive Date: 20120120
  Receipt Date: 20120112
  Transmission Date: 20120608
  Serious: Yes (Other)
  Sender: FDA-Public Use
  Company Number: GB-JNJFOC-20111011271

PATIENT
  Age: 70 Year
  Sex: Male

DRUGS (7)
  1. LANSOPRAZOLE [Concomitant]
  2. PREDNISOLONE [Concomitant]
  3. METHOTREXATE [Concomitant]
  4. DICLOFENAC [Concomitant]
  5. FOLIC ACID [Concomitant]
  6. REMICADE [Suspect]
     Indication: RHEUMATOID ARTHRITIS
     Route: 042
     Dates: start: 20020408, end: 20020715
  7. DIDRONEL [Concomitant]

REACTIONS (1)
  - PROSTATE CANCER [None]
